FAERS Safety Report 23162400 (Version 2)
Quarter: 2023Q4

REPORT INFORMATION
  Report Type: Spontaneous
  Country: US (occurrence: US)
  Receive Date: 20231109
  Receipt Date: 20231228
  Transmission Date: 20240109
  Serious: No
  Sender: FDA-Public Use
  Company Number: US-BoehringerIngelheim-2023-BI-271289

PATIENT
  Age: 71 Year
  Sex: Female
  Weight: 75.7 kg

DRUGS (12)
  1. OFEV [Suspect]
     Active Substance: NINTEDANIB
     Indication: Product used for unknown indication
  2. OFEV [Suspect]
     Active Substance: NINTEDANIB
     Dates: start: 202311
  3. TYVASO DPI [Suspect]
     Active Substance: TREPROSTINIL
     Indication: Pulmonary arterial hypertension
     Route: 055
     Dates: start: 20221026
  4. TYVASO DPI [Suspect]
     Active Substance: TREPROSTINIL
     Route: 055
  5. TYVASO DPI [Suspect]
     Active Substance: TREPROSTINIL
     Dosage: 14 BREATHS
     Route: 055
     Dates: start: 2023, end: 2023
  6. TYVASO DPI [Suspect]
     Active Substance: TREPROSTINIL
     Dosage: 0.6MG/ML
     Route: 055
     Dates: start: 20230112
  7. TYVASO DPI [Suspect]
     Active Substance: TREPROSTINIL
     Dosage: 15 BREATHS
     Route: 055
     Dates: start: 2023
  8. SILDENAFIL CITRATE [Concomitant]
     Active Substance: SILDENAFIL CITRATE
     Indication: Product used for unknown indication
  9. OXYGEN [Concomitant]
     Active Substance: OXYGEN
     Indication: Product used for unknown indication
  10. PREDNISONE [Concomitant]
     Active Substance: PREDNISONE
     Indication: Product used for unknown indication
  11. PANTOPRAZOLE SODIUM [Concomitant]
     Active Substance: PANTOPRAZOLE SODIUM
     Indication: Product used for unknown indication
  12. BUMETANIDE [Concomitant]
     Active Substance: BUMETANIDE
     Indication: Product used for unknown indication

REACTIONS (3)
  - Hepatic enzyme increased [Unknown]
  - Liver disorder [Unknown]
  - Off label use [Unknown]

NARRATIVE: CASE EVENT DATE: 20221026
